FAERS Safety Report 9167073 (Version 1)
Quarter: 2013Q1

REPORT INFORMATION
  Report Type: Spontaneous
  Country: US (occurrence: None)
  Receive Date: 20130228
  Receipt Date: 20130228
  Transmission Date: 20140127
  Serious: No
  Sender: FDA-Public Use
  Company Number: TPA2012A09083

PATIENT
  Age: 64 Year
  Sex: Female

DRUGS (4)
  1. ACTOS (PIOGLITAZONE HYDROCHLORIDE) [Suspect]
     Indication: TYPE 2 DIABETES MELLITUS
     Dates: start: 2005, end: 2012
  2. METFORMIN (METFORMIN) [Concomitant]
  3. AVANDIA (ROSIGLITAZONE MALEATE) [Concomitant]
  4. JANUVIA (SITAGLIPTIN PHOSPHATE) [Concomitant]

REACTIONS (1)
  - Heart rate irregular [None]
